FAERS Safety Report 17815244 (Version 2)
Quarter: 2020Q3

REPORT INFORMATION
  Report Type: Spontaneous
  Country: FR (occurrence: FR)
  Receive Date: 20200522
  Receipt Date: 20200612
  Transmission Date: 20201105
  Serious: Yes (Hospitalization)
  Sender: FDA-Public Use
  Company Number: FR-BAUSCH-BL-2020-014747

PATIENT
  Age: 89 Year
  Sex: Female

DRUGS (13)
  1. METFORMIN [Suspect]
     Active Substance: METFORMIN HYDROCHLORIDE
     Indication: TYPE 2 DIABETES MELLITUS
     Route: 065
  2. VALSARTAN/HYDROCHLOROTHIAZIDE [Suspect]
     Active Substance: HYDROCHLOROTHIAZIDE\VALSARTAN
     Indication: HYPERTENSION
     Route: 065
  3. DICLOFENAC [Suspect]
     Active Substance: DICLOFENAC
     Indication: BACK PAIN
     Route: 061
  4. PARACETAMOL [Suspect]
     Active Substance: ACETAMINOPHEN
     Indication: BACK PAIN
     Route: 065
  5. MELOXICAM. [Suspect]
     Active Substance: MELOXICAM
     Route: 065
  6. OPIUM. [Suspect]
     Active Substance: OPIUM
     Dosage: IMMEDIATE RELEASE
     Route: 065
  7. OPIUM. [Suspect]
     Active Substance: OPIUM
     Route: 065
  8. MELOXICAM. [Suspect]
     Active Substance: MELOXICAM
     Dosage: IMMEDIATE RELEASE
     Route: 065
  9. MELOXICAM. [Suspect]
     Active Substance: MELOXICAM
     Dosage: LONG?ACTING
     Route: 065
  10. OPIUM. [Suspect]
     Active Substance: OPIUM
     Indication: BACK PAIN
     Route: 065
  11. OPIUM. [Suspect]
     Active Substance: OPIUM
     Dosage: LONG?ACTING
     Route: 065
  12. MELOXICAM. [Suspect]
     Active Substance: MELOXICAM
     Indication: BACK PAIN
     Route: 065
  13. RILMENIDINE [Suspect]
     Active Substance: RILMENIDINE
     Indication: HYPERTENSION
     Route: 065

REACTIONS (5)
  - Respiratory failure [Unknown]
  - Drug interaction [Unknown]
  - Lactic acidosis [Unknown]
  - Acute kidney injury [Recovering/Resolving]
  - Overdose [Unknown]
